FAERS Safety Report 19726671 (Version 1)
Quarter: 2021Q3

REPORT INFORMATION
  Report Type: Spontaneous
  Country: US (occurrence: US)
  Receive Date: 20210820
  Receipt Date: 20210820
  Transmission Date: 20211014
  Serious: No
  Sender: FDA-Public Use
  Company Number: None

PATIENT
  Age: 58 Year
  Sex: Female
  Weight: 113.85 kg

DRUGS (13)
  1. METFORMIN [Concomitant]
     Active Substance: METFORMIN HYDROCHLORIDE
  2. ZINC. [Concomitant]
     Active Substance: ZINC
  3. OZEMPIC [Suspect]
     Active Substance: SEMAGLUTIDE
     Indication: DIABETES MELLITUS
     Dosage: ?          QUANTITY:1 INJECTION(S);OTHER FREQUENCY:WEEK;?
     Route: 058
     Dates: start: 20210716, end: 20210723
  4. ATORVASTATIN [Concomitant]
     Active Substance: ATORVASTATIN
  5. CELEBREX [Concomitant]
     Active Substance: CELECOXIB
  6. VITAMINS  C, D, B6, B12 [Concomitant]
  7. MAGNESIUM [Concomitant]
     Active Substance: MAGNESIUM
  8. CHLORITHIADONE [Concomitant]
  9. POTASIUM [Concomitant]
  10. JARDIANCE [Concomitant]
     Active Substance: EMPAGLIFLOZIN
  11. MULTIVITAMIN [Concomitant]
     Active Substance: VITAMINS
  12. LOSARTAN. [Concomitant]
     Active Substance: LOSARTAN
  13. CRANBERRY. [Concomitant]
     Active Substance: CRANBERRY

REACTIONS (9)
  - Dyspnoea [None]
  - Anxiety [None]
  - Feeling abnormal [None]
  - Oropharyngeal discomfort [None]
  - Tongue discomfort [None]
  - Chest discomfort [None]
  - Heart rate increased [None]
  - Paraesthesia oral [None]
  - Speech disorder [None]

NARRATIVE: CASE EVENT DATE: 20210723
